FAERS Safety Report 7280069-X (Version None)
Quarter: 2011Q1

REPORT INFORMATION
  Report Type: 
  Country: None (occurrence: None)
  Receive Date: 20110208
  Receipt Date: 20110131
  Transmission Date: 20110831
  Serious: Yes (Other)
  Sender: FDA-Public Use
  Company Number: US-B.I. PHARMACEUTICALS,INC./RIDGEFIELD-2011-BP-01758BP

PATIENT
  Age: 66 Year
  Sex: Male

DRUGS (9)
  1. ZANTAC [Suspect]
     Indication: GASTRITIS PROPHYLAXIS
     Dosage: 150 MG
     Dates: start: 20101022
  2. REVLIMID [Suspect]
     Indication: MULTIPLE MYELOMA
     Dosage: 25 MG
     Route: 048
     Dates: start: 20101015
  3. LASIX [Concomitant]
     Dosage: 20 MG
     Route: 048
  4. DECADRON [Concomitant]
     Route: 048
  5. ZANTAC [Suspect]
     Indication: GASTROOESOPHAGEAL REFLUX DISEASE
  6. ASPIRIN [Concomitant]
     Dosage: 325 MG
     Route: 048
  7. SIMVASTATIN [Concomitant]
     Dosage: 20 MG
     Route: 048
  8. HYTRIN [Concomitant]
     Dosage: 5 MG
     Route: 048
     Dates: start: 20101112
  9. PROAIR HFA [Concomitant]
     Route: 055

REACTIONS (4)
  - RASH GENERALISED [None]
  - RASH PAPULAR [None]
  - NEUTROPHIL COUNT DECREASED [None]
  - WHITE BLOOD CELL COUNT DECREASED [None]
